FAERS Safety Report 14844504 (Version 1)
Quarter: 2018Q2

REPORT INFORMATION
  Report Type: Spontaneous
  Country: US (occurrence: US)
  Receive Date: 20180503
  Receipt Date: 20180503
  Transmission Date: 20180711
  Serious: No
  Sender: FDA-Public Use
  Company Number: US-009507513-1804USA005234

PATIENT
  Age: 17 Year
  Sex: Female

DRUGS (4)
  1. FEXOFENADINE HYDROCHLORIDE. [Suspect]
     Active Substance: FEXOFENADINE HYDROCHLORIDE
     Indication: ASPIRIN-EXACERBATED RESPIRATORY DISEASE
  2. SINGULAIR [Suspect]
     Active Substance: MONTELUKAST SODIUM
     Indication: ASPIRIN-EXACERBATED RESPIRATORY DISEASE
     Route: 048
  3. FLUTICASONE PROPIONATE (+) SALMETEROL XINAFOATE [Suspect]
     Active Substance: FLUTICASONE PROPIONATE\SALMETEROL XINAFOATE
     Indication: ASPIRIN-EXACERBATED RESPIRATORY DISEASE
  4. RANITIDINE. [Suspect]
     Active Substance: RANITIDINE
     Indication: ASPIRIN-EXACERBATED RESPIRATORY DISEASE

REACTIONS (1)
  - Drug ineffective [Unknown]
